FAERS Safety Report 15433360 (Version 1)
Quarter: 2018Q3

REPORT INFORMATION
  Report Type: Spontaneous
  Country: PL (occurrence: PL)
  Receive Date: 20180927
  Receipt Date: 20180927
  Transmission Date: 20181010
  Serious: Yes (Other)
  Sender: FDA-Public Use
  Company Number: PL-009507513-1809POL010367

PATIENT
  Sex: Male

DRUGS (1)
  1. ZOCOR [Suspect]
     Active Substance: SIMVASTATIN
     Dosage: UNK
     Route: 048
     Dates: start: 2008

REACTIONS (13)
  - Asthenia [Unknown]
  - Depressed mood [Unknown]
  - Abdominal pain [Unknown]
  - Dyspnoea [Unknown]
  - Major depression [Unknown]
  - Abdominal distension [Unknown]
  - Myalgia [Unknown]
  - Memory impairment [Unknown]
  - Sleep disorder [Unknown]
  - Erectile dysfunction [Unknown]
  - Libido decreased [Unknown]
  - Liver function test increased [Unknown]
  - Blood glucose increased [Unknown]
